FAERS Safety Report 11114880 (Version 1)
Quarter: 2015Q2

REPORT INFORMATION
  Report Type: Spontaneous
  Country: US (occurrence: None)
  Receive Date: 20150514
  Receipt Date: 20150514
  Transmission Date: 20150821
  Serious: Yes (Disabling, Other)
  Sender: FDA-Public Use
  Company Number: None

PATIENT
  Age: 78 Year
  Sex: Male
  Weight: 160 kg

DRUGS (5)
  1. PRESERVISION [Concomitant]
     Active Substance: MINERALS\VITAMINS
  2. LOVASTATIN. [Concomitant]
     Active Substance: LOVASTATIN
  3. POTASSIUM CRITRATE [Concomitant]
  4. ASA [Concomitant]
     Active Substance: ASPIRIN
  5. AVASTIN [Suspect]
     Active Substance: BEVACIZUMAB
     Indication: NEOVASCULAR AGE-RELATED MACULAR DEGENERATION
     Dosage: 2.5 MG ONCE/10 WEEKS AFTER 11/18/14 INTRAVITREAL INJECTION OS
     Dates: start: 20130802, end: 20141118

REACTIONS (2)
  - Vitreous floaters [None]
  - Product contamination [None]

NARRATIVE: CASE EVENT DATE: 20141118
